FAERS Safety Report 7618803-9 (Version None)
Quarter: 2011Q3

REPORT INFORMATION
  Report Type: 
  Country: None (occurrence: None)
  Receive Date: 20110718
  Receipt Date: 20090716
  Transmission Date: 20111222
  Serious: Yes (Death)
  Sender: FDA-Public Use
  Company Number: US-BAYER-200829611NA

PATIENT
  Age: 47 Year
  Sex: Female
  Weight: 109 kg

DRUGS (24)
  1. EPOETIN ALFA [Concomitant]
  2. AMLODIPINE [Concomitant]
  3. COUMADIN [Concomitant]
  4. OMNISCAN [Suspect]
     Dosage: UNK
     Dates: start: 20040210
  5. OMNISCAN [Suspect]
     Dosage: UNK
     Dates: start: 20030811
  6. OMNISCAN [Suspect]
     Dosage: UNK
     Dates: start: 20031013
  7. OMNISCAN [Suspect]
     Dosage: UNK
     Dates: start: 20050831
  8. NEPHROCAPS [Concomitant]
  9. FUROSEMIDE [Concomitant]
  10. GABAPENTIN [Concomitant]
  11. CELLCEPT [Concomitant]
  12. CYCLOSPORINE [Concomitant]
  13. RENAGEL [Concomitant]
  14. GADOLINIUM IN UNSPECIFIED DRUG [Suspect]
     Indication: NUCLEAR MAGNETIC RESONANCE IMAGING
     Dosage: UNK
     Dates: start: 20001222, end: 20001222
  15. OSCAL [Concomitant]
  16. GADOLINIUM IN UNSPECIFIED DRUG [Suspect]
     Indication: ANGIOGRAM
     Dosage: UNK
     Dates: start: 20001222, end: 20001222
  17. OMNISCAN [Suspect]
     Indication: NUCLEAR MAGNETIC RESONANCE IMAGING
     Dosage: UNK
     Dates: start: 20030808
  18. TRAMADOL HCL [Concomitant]
  19. IRON [IRON] [Concomitant]
  20. LORAZEPAM [Concomitant]
  21. PAROXETINE HCL [Concomitant]
  22. SENSIPAR [Concomitant]
  23. MAGNEVIST [Suspect]
     Indication: PRODUCT USED FOR UNKNOWN INDICATION
  24. OMNISCAN [Suspect]
     Dosage: UNK
     Dates: start: 20060703

REACTIONS (10)
  - EMOTIONAL DISTRESS [None]
  - SKIN INDURATION [None]
  - DISCOMFORT [None]
  - NEPHROGENIC SYSTEMIC FIBROSIS [None]
  - ANXIETY [None]
  - MOBILITY DECREASED [None]
  - PAIN [None]
  - MENTAL DISORDER [None]
  - ANHEDONIA [None]
  - EXTREMITY CONTRACTURE [None]
